FAERS Safety Report 21860538 (Version 2)
Quarter: 2023Q1

REPORT INFORMATION
  Report Type: Spontaneous
  Country: US (occurrence: US)
  Receive Date: 20230113
  Receipt Date: 20230117
  Transmission Date: 20230418
  Serious: Yes (Death, Other)
  Sender: FDA-Public Use
  Company Number: US-PFIZER INC-202300013907

PATIENT
  Age: 59 Year
  Sex: Female

DRUGS (20)
  1. FLUCONAZOLE [Suspect]
     Active Substance: FLUCONAZOLE
     Indication: Neoscytalidium infection
     Dosage: UNK
  2. FLUCONAZOLE [Suspect]
     Active Substance: FLUCONAZOLE
     Indication: Brain herniation
  3. FLUCONAZOLE [Suspect]
     Active Substance: FLUCONAZOLE
     Indication: Intraventricular haemorrhage
  4. FLUCONAZOLE [Suspect]
     Active Substance: FLUCONAZOLE
     Indication: Encephalitis fungal
  5. FLUCONAZOLE [Suspect]
     Active Substance: FLUCONAZOLE
     Indication: Cerebral mass effect
  6. VORICONAZOLE [Suspect]
     Active Substance: VORICONAZOLE
     Indication: Neoscytalidium infection
     Dosage: UNK
  7. VORICONAZOLE [Suspect]
     Active Substance: VORICONAZOLE
     Indication: Brain herniation
  8. VORICONAZOLE [Suspect]
     Active Substance: VORICONAZOLE
     Indication: Intraventricular haemorrhage
  9. VORICONAZOLE [Suspect]
     Active Substance: VORICONAZOLE
     Indication: Encephalitis fungal
  10. VORICONAZOLE [Suspect]
     Active Substance: VORICONAZOLE
     Indication: Cerebral mass effect
  11. AMPHOTERICIN B [Suspect]
     Active Substance: AMPHOTERICIN B
     Indication: Neoscytalidium infection
     Dosage: UNK
  12. AMPHOTERICIN B [Suspect]
     Active Substance: AMPHOTERICIN B
     Indication: Brain herniation
  13. AMPHOTERICIN B [Suspect]
     Active Substance: AMPHOTERICIN B
     Indication: Intraventricular haemorrhage
  14. AMPHOTERICIN B [Suspect]
     Active Substance: AMPHOTERICIN B
     Indication: Encephalitis fungal
  15. AMPHOTERICIN B [Suspect]
     Active Substance: AMPHOTERICIN B
     Indication: Cerebral mass effect
  16. AMPHOTERICIN B [Suspect]
     Active Substance: AMPHOTERICIN B
     Indication: Neoscytalidium infection
     Dosage: UNK
  17. AMPHOTERICIN B [Suspect]
     Active Substance: AMPHOTERICIN B
     Indication: Brain herniation
  18. AMPHOTERICIN B [Suspect]
     Active Substance: AMPHOTERICIN B
     Indication: Intraventricular haemorrhage
  19. AMPHOTERICIN B [Suspect]
     Active Substance: AMPHOTERICIN B
     Indication: Encephalitis fungal
  20. AMPHOTERICIN B [Suspect]
     Active Substance: AMPHOTERICIN B
     Indication: Cerebral mass effect

REACTIONS (2)
  - Off label use [Fatal]
  - Drug ineffective for unapproved indication [Fatal]
